FAERS Safety Report 10694673 (Version 1)
Quarter: 2015Q1

REPORT INFORMATION
  Report Type: Spontaneous
  Country: US (occurrence: None)
  Receive Date: 20150105
  Receipt Date: 20150105
  Transmission Date: 20150721
  Serious: Yes (Other)
  Sender: FDA-Public Use
  Company Number: None

PATIENT
  Age: 62 Year
  Sex: Female
  Weight: 81.65 kg

DRUGS (1)
  1. CETIRIZINE [Suspect]
     Active Substance: CETIRIZINE HYDROCHLORIDE
     Indication: MULTIPLE ALLERGIES
     Dates: start: 20131020, end: 20131226

REACTIONS (5)
  - Pruritus [None]
  - Fatigue [None]
  - Diarrhoea [None]
  - Dry mouth [None]
  - Urticaria [None]

NARRATIVE: CASE EVENT DATE: 20140104
